FAERS Safety Report 10900506 (Version 1)
Quarter: 2015Q1

REPORT INFORMATION
  Report Type: Spontaneous
  Country: US (occurrence: None)
  Receive Date: 20150303
  Receipt Date: 20150303
  Transmission Date: 20150721
  Serious: Yes (Other)
  Sender: FDA-Public Use
  Company Number: CIO15011934

PATIENT
  Age: 76 Year
  Sex: Male

DRUGS (2)
  1. ALIGN [Suspect]
     Active Substance: BIFIDOBACTERIUM LONGUM SUBSP. INFANTIS
     Route: 048
     Dates: start: 20150205, end: 20150211
  2. DIETARY SUPPLEMENT [Suspect]
     Active Substance: DIETARY SUPPLEMENT

REACTIONS (8)
  - Pruritus [None]
  - Hypersensitivity [None]
  - Swelling face [None]
  - Pain in extremity [None]
  - Swollen tongue [None]
  - Lip swelling [None]
  - Arthralgia [None]
  - Dyspnoea [None]

NARRATIVE: CASE EVENT DATE: 20150209
